FAERS Safety Report 10028991 (Version 1)
Quarter: 2014Q1

REPORT INFORMATION
  Report Type: Spontaneous
  Country: US (occurrence: US)
  Receive Date: 20140321
  Receipt Date: 20140321
  Transmission Date: 20141002
  Serious: Yes (Other)
  Sender: FDA-Public Use
  Company Number: US-ASTRAZENECA-2014SE18828

PATIENT
  Sex: Male

DRUGS (1)
  1. NEXIUM [Suspect]
     Indication: DYSPEPSIA
     Dosage: 40 DAILY
     Route: 048
     Dates: start: 2004, end: 20140315

REACTIONS (3)
  - Convulsion [Unknown]
  - Dyspepsia [Unknown]
  - Therapy cessation [Unknown]
